FAERS Safety Report 14392469 (Version 1)
Quarter: 2018Q1

REPORT INFORMATION
  Report Type: Spontaneous
  Country: US (occurrence: US)
  Receive Date: 20180112
  Receipt Date: 20180112
  Transmission Date: 20180509
  Serious: Yes (Disabling, Other)
  Sender: FDA-Public Use
  Company Number: None

PATIENT
  Age: 44 Year
  Sex: Female
  Weight: 81 kg

DRUGS (1)
  1. QSYMIA [Suspect]
     Active Substance: PHENTERMINE HYDROCHLORIDE\TOPIRAMATE
     Indication: OBESITY
     Dosage: ?          QUANTITY:30 CAPSULE(S);?
     Route: 048

REACTIONS (3)
  - Hypoaesthesia [None]
  - Visual acuity reduced [None]
  - Paraesthesia [None]

NARRATIVE: CASE EVENT DATE: 20160520
